FAERS Safety Report 22024907 (Version 1)
Quarter: 2023Q1

REPORT INFORMATION
  Report Type: Spontaneous
  Country: US (occurrence: US)
  Receive Date: 20230223
  Receipt Date: 20230223
  Transmission Date: 20230417
  Serious: No
  Sender: FDA-Public Use
  Company Number: US-JNJFOC-20230230349

PATIENT
  Age: 71 Year
  Sex: Male
  Weight: 70.370 kg

DRUGS (3)
  1. ERLEADA [Suspect]
     Active Substance: APALUTAMIDE
     Indication: Prostate cancer metastatic
     Dosage: WITH 4 PILLS OF ERLEADA THEN IN MIDDLE OF DECEMBER,
     Route: 048
     Dates: start: 202202
  2. WARFARIN [Concomitant]
     Active Substance: WARFARIN
  3. LUPRON [Concomitant]
     Active Substance: LEUPROLIDE ACETATE
     Indication: Product used for unknown indication

REACTIONS (2)
  - Flatulence [Unknown]
  - Change of bowel habit [Unknown]
